FAERS Safety Report 6017237-0 (Version None)
Quarter: 2008Q4

REPORT INFORMATION
  Report Type: 
  Country: None (occurrence: None)
  Receive Date: 20081223
  Receipt Date: 20081211
  Transmission Date: 20090506
  Serious: Yes (Hospitalization, Other)
  Sender: FDA-Public Use
  Company Number: FR-CELGENEUS-TNZFR200800118

PATIENT
  Sex: Female
  Weight: 50 kg

DRUGS (8)
  1. INNOHEP [Suspect]
     Route: 058
     Dates: start: 20080614, end: 20080620
  2. LOVENOX [Suspect]
     Route: 058
     Dates: start: 20080620
  3. SOLUPRED [Concomitant]
     Dates: start: 20080612
  4. NOROXIN [Concomitant]
     Dates: start: 20080612
  5. DAFALGAN [Concomitant]
     Route: 048
     Dates: start: 20080612, end: 20080619
  6. DOLIPRANE [Concomitant]
     Indication: DRUG USE FOR UNKNOWN INDICATION
     Route: 048
     Dates: start: 20080526
  7. TOPALGIC [Concomitant]
     Indication: DRUG USE FOR UNKNOWN INDICATION
     Route: 048
     Dates: start: 20080526
  8. BACTRIM [Concomitant]
     Indication: DRUG USE FOR UNKNOWN INDICATION
     Dates: start: 20080526, end: 20080530

REACTIONS (3)
  - C-REACTIVE PROTEIN INCREASED [None]
  - DEEP VEIN THROMBOSIS [None]
  - THROMBOCYTHAEMIA [None]
